FAERS Safety Report 25350310 (Version 2)
Quarter: 2025Q3

REPORT INFORMATION
  Report Type: Spontaneous
  Country: US (occurrence: US)
  Receive Date: 20250523
  Receipt Date: 20250918
  Transmission Date: 20251021
  Serious: Yes (Hospitalization, Other)
  Sender: SANOFI AVENTIS
  Company Number: US-SA-2025SA146996

PATIENT
  Age: 6 Year
  Sex: Female
  Weight: 17.23 kg

DRUGS (12)
  1. DUPIXENT [Suspect]
     Active Substance: DUPILUMAB
     Indication: Pulmonary arterial hypertension
     Dosage: 300 MG, QM
     Route: 058
  2. DUPIXENT [Suspect]
     Active Substance: DUPILUMAB
     Indication: Illness
  3. DUPIXENT [Suspect]
     Active Substance: DUPILUMAB
     Indication: Dermatitis atopic
  4. CHLORAPREP [Suspect]
     Active Substance: CHLORHEXIDINE GLUCONATE\ISOPROPYL ALCOHOL
  5. REMODULIN [Concomitant]
     Active Substance: TREPROSTINIL
  6. LETAIRIS [Concomitant]
     Active Substance: AMBRISENTAN
  7. CEFDINIR [Concomitant]
     Active Substance: CEFDINIR
  8. SUCRALFATE [Concomitant]
     Active Substance: SUCRALFATE
  9. TADALAFIL [Concomitant]
     Active Substance: TADALAFIL
  10. DIPHENHYDRAMINE HYDROCHLORIDE [Concomitant]
     Active Substance: DIPHENHYDRAMINE HYDROCHLORIDE
  11. ACETAMINOPHEN [Concomitant]
     Active Substance: ACETAMINOPHEN
  12. MELATONIN [Concomitant]
     Active Substance: MELATONIN

REACTIONS (3)
  - Cardiac ablation [Unknown]
  - Skin burning sensation [Unknown]
  - Product use in unapproved indication [Unknown]

NARRATIVE: CASE EVENT DATE: 20250512
